FAERS Safety Report 23908218 (Version 1)
Quarter: 2024Q2

REPORT INFORMATION
  Report Type: Spontaneous
  Country: US (occurrence: None)
  Receive Date: 20240524
  Receipt Date: 20240524
  Transmission Date: 20240716
  Serious: Yes (Other)
  Sender: FDA-Public Use
  Company Number: None

PATIENT
  Age: 25 Year
  Sex: Male
  Weight: 122.4 kg

DRUGS (1)
  1. TESTOSTERONE CYPIONATE [Suspect]
     Active Substance: TESTOSTERONE CYPIONATE
     Dosage: 0.6 MG ONCE WEEKLY INTRAMUSCULAR
     Route: 030

REACTIONS (4)
  - Injection site reaction [None]
  - Nausea [None]
  - Vomiting [None]
  - Post procedural complication [None]

NARRATIVE: CASE EVENT DATE: 20240523
